FAERS Safety Report 5370103-6 (Version None)
Quarter: 2007Q2

REPORT INFORMATION
  Report Type: 
  Country: None (occurrence: None)
  Receive Date: 20070626
  Receipt Date: 20070615
  Transmission Date: 20071010
  Serious: Yes (Disabling)
  Sender: FDA-Public Use
  Company Number: DE-JNJFOC-20070603441

PATIENT
  Age: 49 Year
  Sex: Female

DRUGS (4)
  1. LEVOFLOXACIN [Suspect]
     Indication: BRONCHITIS BACTERIAL
     Route: 048
  2. ACETAMINOPHEN [Concomitant]
     Indication: PYREXIA
     Route: 048
  3. SOLEDUM [Concomitant]
     Route: 055
  4. CLARITHROMYCIN [Concomitant]
     Route: 065

REACTIONS (2)
  - MUSCULOSKELETAL STIFFNESS [None]
  - TENDON DISORDER [None]
